FAERS Safety Report 22596366 (Version 1)
Quarter: 2023Q2

REPORT INFORMATION
  Report Type: Spontaneous
  Country: GB (occurrence: None)
  Receive Date: 20230613
  Receipt Date: 20230613
  Transmission Date: 20230722
  Serious: Yes (Hospitalization, Other)
  Sender: FDA-Public Use
  Company Number: GB-Merck Healthcare KGaA-9408225

PATIENT
  Age: 85 Year
  Sex: Female

DRUGS (1)
  1. TEPOTINIB [Suspect]
     Active Substance: TEPOTINIB
     Indication: Lung neoplasm malignant
     Dates: start: 202303

REACTIONS (4)
  - Dyspnoea [Unknown]
  - Fatigue [Unknown]
  - Metastases to central nervous system [Unknown]
  - Oedema peripheral [Unknown]
